FAERS Safety Report 25881099 (Version 2)
Quarter: 2025Q4

REPORT INFORMATION
  Report Type: Report from Study
  Country: US (occurrence: US)
  Receive Date: 20251004
  Receipt Date: 20251011
  Transmission Date: 20260117
  Serious: Yes (Hospitalization)
  Sender: ABBVIE
  Company Number: US-ABBVIE-6488438

PATIENT
  Age: 82 Year
  Sex: Male

DRUGS (1)
  1. VYALEV [Suspect]
     Active Substance: FOSCARBIDOPA\FOSLEVODOPA
     Indication: Parkinson^s disease
     Route: 058
     Dates: start: 20250910, end: 20251001

REACTIONS (6)
  - Fall [Recovering/Resolving]
  - Movement disorder [Unknown]
  - Catheter site infection [Recovering/Resolving]
  - Contusion [Recovering/Resolving]
  - Skin laceration [Recovering/Resolving]
  - White blood cell count increased [Unknown]

NARRATIVE: CASE EVENT DATE: 20250101
